FAERS Safety Report 4469460-4 (Version None)
Quarter: 2004Q4

REPORT INFORMATION
  Report Type: 
  Country: None (occurrence: None)
  Receive Date: 20041005
  Receipt Date: 20040920
  Transmission Date: 20050328
  Serious: Yes (Hospitalization)
  Sender: FDA-Public Use
  Company Number: 201701

PATIENT
  Age: 60 Year
  Sex: Male
  Weight: 86.1834 kg

DRUGS (9)
  1. AVONEX [Suspect]
     Indication: MULTIPLE SCLEROSIS
     Dosage: 30 MCG QW IM
     Route: 030
     Dates: start: 19961001, end: 20030801
  2. AVONEX [Suspect]
     Indication: MULTIPLE SCLEROSIS
     Dates: start: 20030905
  3. BACLOFEN [Concomitant]
  4. OXYBUTYNIN [Concomitant]
  5. METOPROLOL [Concomitant]
  6. HYDROCHLOROTHIAZIDE [Concomitant]
  7. POTASSIUM [Concomitant]
  8. DIAZEPAM [Concomitant]
  9. ZINC [Concomitant]

REACTIONS (8)
  - ASTHENIA [None]
  - CHOLELITHIASIS [None]
  - CONFUSIONAL STATE [None]
  - FALL [None]
  - FEMUR FRACTURE [None]
  - JOINT DISLOCATION [None]
  - OSTEOPOROSIS [None]
  - PARALYSIS [None]
